FAERS Safety Report 24825267 (Version 4)
Quarter: 2025Q2

REPORT INFORMATION
  Report Type: Report from Study
  Country: US (occurrence: US)
  Receive Date: 20250109
  Receipt Date: 20250408
  Transmission Date: 20250716
  Serious: Yes (Hospitalization, Other)
  Sender: GILEAD
  Company Number: US-GILEAD-2025-0699203

PATIENT
  Age: 70 Year
  Sex: Female

DRUGS (35)
  1. AZTREONAM LYSINE [Suspect]
     Active Substance: AZTREONAM LYSINE
     Indication: Cystic fibrosis
     Dosage: 75 MG, TID (IN THE MORNING, IN THE AFTERNOON AND AT BEDTIME FOR 28 DAYS)
     Route: 055
     Dates: start: 202106
  2. AZTREONAM LYSINE [Suspect]
     Active Substance: AZTREONAM LYSINE
     Indication: Pseudomonas infection
  3. AZITHROMYCIN [Concomitant]
     Active Substance: AZITHROMYCIN
  4. AZITHROMYCIN [Concomitant]
     Active Substance: AZITHROMYCIN
  5. GEMTESA [Concomitant]
     Active Substance: VIBEGRON
  6. SINEMET [Concomitant]
     Active Substance: CARBIDOPA\LEVODOPA
  7. PULMOZYME [Concomitant]
     Active Substance: DORNASE ALFA
  8. JARDIANCE [Concomitant]
     Active Substance: EMPAGLIFLOZIN
  9. TORSEMIDE [Concomitant]
     Active Substance: TORSEMIDE
  10. LYRICA [Concomitant]
     Active Substance: PREGABALIN
  11. CIPROFLOXACIN HYDROCHLORIDE [Concomitant]
     Active Substance: CIPROFLOXACIN HYDROCHLORIDE
  12. TRIKAFTA [Concomitant]
     Active Substance: ELEXACAFTOR\IVACAFTOR\TEZACAFTOR
  13. ALBUTEROL SULFATE [Concomitant]
     Active Substance: ALBUTEROL SULFATE
  14. PEPCID [Concomitant]
     Active Substance: FAMOTIDINE
  15. CLONIDINE HYDROCHLORIDE [Concomitant]
     Active Substance: CLONIDINE HYDROCHLORIDE
  16. ALBUTEROL\IPRATROPIUM [Concomitant]
     Active Substance: ALBUTEROL\IPRATROPIUM
  17. PROBIOTIC 10 [BIFIDOBACTERIUM BIFIDUM;BIFIDOBACTERIUM LACTIS;LACTIPLAN [Concomitant]
  18. VENLAFAXINE HCL [Concomitant]
     Active Substance: VENLAFAXINE HYDROCHLORIDE
  19. NADOLOL [Concomitant]
     Active Substance: NADOLOL
  20. VESICARE [Concomitant]
     Active Substance: SOLIFENACIN SUCCINATE
  21. OMEPRAZOLE [Concomitant]
     Active Substance: OMEPRAZOLE
  22. CLONAZEPAM [Concomitant]
     Active Substance: CLONAZEPAM
  23. NAPROXEN [Concomitant]
     Active Substance: NAPROXEN
  24. BETHANECHOL CHLORIDE [Concomitant]
     Active Substance: BETHANECHOL CHLORIDE
  25. ALPRAZOLAM [Concomitant]
     Active Substance: ALPRAZOLAM
  26. COMPAZINE [Concomitant]
     Active Substance: PROCHLORPERAZINE MALEATE
  27. SODIUM CHLORIDE [Concomitant]
     Active Substance: SODIUM CHLORIDE
  28. TYMLOS [Concomitant]
     Active Substance: ABALOPARATIDE
  29. CIPROFLOXACIN HYDROCHLORIDE [Concomitant]
     Active Substance: CIPROFLOXACIN HYDROCHLORIDE
  30. PEPCID AC [Concomitant]
     Active Substance: FAMOTIDINE
  31. CLONIDINE HYDROCHLORIDE [Concomitant]
     Active Substance: CLONIDINE HYDROCHLORIDE
  32. IPRATROPIUM [Concomitant]
     Active Substance: IPRATROPIUM
  33. PROBIOTICS NOS [Concomitant]
     Active Substance: PROBIOTICS NOS
  34. VENLAFAXINE HYDROCHLORIDE [Concomitant]
     Active Substance: VENLAFAXINE HYDROCHLORIDE
  35. PROCHLORPERAZINE EDISYLATE [Concomitant]
     Active Substance: PROCHLORPERAZINE EDISYLATE

REACTIONS (3)
  - Cardiac failure [Unknown]
  - Cystic fibrosis [Unknown]
  - Infection [Unknown]

NARRATIVE: CASE EVENT DATE: 20250101
